FAERS Safety Report 7392128-1 (Version None)
Quarter: 2011Q2

REPORT INFORMATION
  Report Type: 
  Country: None (occurrence: None)
  Receive Date: 20110404
  Receipt Date: 20110325
  Transmission Date: 20111010
  Serious: Yes (Hospitalization)
  Sender: FDA-Public Use
  Company Number: A0898678A

PATIENT
  Age: 58 Year
  Sex: Male

DRUGS (5)
  1. AVANDIA [Suspect]
     Dosage: 4MG PER DAY
     Route: 048
     Dates: start: 20050101, end: 20070627
  2. ZOCOR [Concomitant]
  3. GLUCOVANCE [Concomitant]
  4. PEPCID [Concomitant]
  5. ALBUTEROL [Concomitant]

REACTIONS (2)
  - CORONARY ARTERY DISEASE [None]
  - CORONARY ARTERY BYPASS [None]
